FAERS Safety Report 11100150 (Version 1)
Quarter: 2015Q2

REPORT INFORMATION
  Report Type: Spontaneous
  Country: US (occurrence: CA)
  Receive Date: 20150508
  Receipt Date: 20150508
  Transmission Date: 20150821
  Serious: Yes (Disabling)
  Sender: FDA-Public Use
  Company Number: CA-TEVA-561288ACC

PATIENT
  Age: 25 Year
  Sex: Female

DRUGS (19)
  1. PREVACID [Concomitant]
     Active Substance: LANSOPRAZOLE
     Dosage: UNKNOWN FORM STRENGTH
     Route: 065
  2. STEMETIL [Concomitant]
     Active Substance: PROCHLORPERAZINE MALEATE
     Dosage: UNKNOWN FORM STRENGTH
     Route: 065
  3. TACROLIMUS. [Concomitant]
     Active Substance: TACROLIMUS
     Dosage: UNKNOWN FORM STRENGTH
     Route: 065
  4. ONDANSETRON [Suspect]
     Active Substance: ONDANSETRON
     Route: 060
  5. CHOLECALCIFEROL [Concomitant]
     Active Substance: CHOLECALCIFEROL
     Dosage: UNKNOWN FORM STRENGTH
     Route: 065
  6. TOPAMAX [Concomitant]
     Active Substance: TOPIRAMATE
     Dosage: UNKNOWN FORM STRENGTH
     Route: 065
  7. AXERT 12.5MG [Concomitant]
     Dosage: UNKNOWN FORM STRENGTH
     Route: 065
  8. ZOFRAN [Concomitant]
     Active Substance: ONDANSETRON HYDROCHLORIDE
     Dosage: UNKNOWN FORM STRENGTH
     Route: 065
  9. ALTACE [Concomitant]
     Active Substance: RAMIPRIL
     Dosage: UNKNOWN FORM STRENGTH
     Route: 065
  10. CELLCEPT [Concomitant]
     Active Substance: MYCOPHENOLATE MOFETIL\MYCOPHENOLATE MOFETIL HYDROCHLORIDE
     Dosage: UNKNOWN FORM STRENGTH
     Route: 065
  11. OXYCODONE [Concomitant]
     Active Substance: OXYCODONE
     Dosage: UNKNOWN FORM STRENGTH
     Route: 065
  12. RESOTRAN FILM-COATED [Concomitant]
     Dosage: UNKNOWN FORM STRENGTH
     Route: 065
  13. SEPTRA [Concomitant]
     Active Substance: SULFAMETHOXAZOLE\TRIMETHOPRIM
     Dosage: UNKNOWN FORM STRENGTH
     Route: 065
  14. COTAZYM ECS 20 [Concomitant]
     Dosage: UNKNOWN FORM STRENGTH
     Route: 065
  15. DURAGESIC MAT [Concomitant]
     Active Substance: FENTANYL
     Dosage: UNKNOWN FORM STRENGTH
     Route: 065
  16. VALCYTE [Concomitant]
     Active Substance: VALGANCICLOVIR HYDROCHLORIDE
     Dosage: UNKNOWN FORM STRENGTH
     Route: 065
  17. CYCLOBENZAPRINE [Concomitant]
     Active Substance: CYCLOBENZAPRINE
     Dosage: UNKNOWN FORM STRENGTH
     Route: 065
  18. STEMETIL [Concomitant]
     Active Substance: PROCHLORPERAZINE MALEATE
     Dosage: UNKNOWN FORM STRENGTH
     Route: 065
  19. ONDANSETRON [Suspect]
     Active Substance: ONDANSETRON
     Indication: VOMITING
     Route: 060

REACTIONS (2)
  - Vomiting [Recovered/Resolved]
  - Condition aggravated [Recovered/Resolved]
